FAERS Safety Report 21286046 (Version 1)
Quarter: 2022Q3

REPORT INFORMATION
  Report Type: Spontaneous
  Country: ES (occurrence: ES)
  Receive Date: 20220902
  Receipt Date: 20220902
  Transmission Date: 20221027
  Serious: Yes (Other)
  Sender: FDA-Public Use
  Company Number: None

PATIENT
  Age: 74 Year
  Sex: Male

DRUGS (1)
  1. PAXLOVID [Suspect]
     Active Substance: NIRMATRELVIR\RITONAVIR
     Indication: COVID-19 treatment
     Dosage: 30 (20 + 10) TABLETS
     Route: 048
     Dates: start: 20220816, end: 20220822

REACTIONS (2)
  - Haematoma [Recovering/Resolving]
  - Incorrect product administration duration [Recovering/Resolving]

NARRATIVE: CASE EVENT DATE: 20220817
